FAERS Safety Report 10783696 (Version 2)
Quarter: 2015Q2

REPORT INFORMATION
  Report Type: Spontaneous
  Country: JP (occurrence: JP)
  Receive Date: 20150210
  Receipt Date: 20150409
  Transmission Date: 20150821
  Serious: Yes (Hospitalization, Other)
  Sender: FDA-Public Use
  Company Number: JP-GLAXOSMITHKLINE-JP2015JPN008680

PATIENT
  Age: 26 Year
  Sex: Female
  Weight: 65 kg

DRUGS (4)
  1. LAMICTAL [Suspect]
     Active Substance: LAMOTRIGINE
     Indication: EPILEPSY
     Dosage: 25 MG, QOD
     Route: 048
     Dates: start: 20141206, end: 20141219
  2. MYSTAN [Concomitant]
     Active Substance: CLOBAZAM
     Indication: EPILEPSY
     Dosage: 50 MG, BID
  3. LAMICTAL [Suspect]
     Active Substance: LAMOTRIGINE
     Dosage: 25 MG, QD
     Route: 048
     Dates: start: 20141220, end: 20150115
  4. DEPAKENE [Concomitant]
     Active Substance: VALPROIC ACID
     Indication: EPILEPSY
     Dosage: UNK UNK, BID

REACTIONS (14)
  - Lymphocyte morphology abnormal [Recovering/Resolving]
  - Hepatitis acute [Unknown]
  - Oropharyngeal pain [Unknown]
  - Pruritus [Recovering/Resolving]
  - Rash generalised [Recovering/Resolving]
  - Decreased appetite [Unknown]
  - Liver disorder [Recovered/Resolved]
  - Lymphadenopathy [Recovered/Resolved]
  - Pyrexia [Recovered/Resolved]
  - Dermatitis exfoliative [Recovering/Resolving]
  - Liver scan abnormal [Unknown]
  - Eosinophil count increased [Recovering/Resolving]
  - Generalised erythema [Unknown]
  - Drug eruption [Unknown]

NARRATIVE: CASE EVENT DATE: 201501
